FAERS Safety Report 7952959-3 (Version None)
Quarter: 2011Q4

REPORT INFORMATION
  Report Type: 
  Country: None (occurrence: None)
  Receive Date: 20111201
  Receipt Date: 20111122
  Transmission Date: 20120403
  Serious: Yes (Other)
  Sender: FDA-Public Use
  Company Number: PHHY2011US56297

PATIENT
  Sex: Female
  Weight: 98 kg

DRUGS (2)
  1. GLEEVEC [Suspect]
     Indication: CHRONIC MYELOID LEUKAEMIA
     Dosage: 400 MG, DAILY
     Route: 048
     Dates: start: 20090831
  2. GLEEVEC [Suspect]
     Dosage: 400 MG, DAILY
     Route: 048
     Dates: start: 20110602

REACTIONS (5)
  - MYALGIA [None]
  - PAIN [None]
  - DYSPNOEA [None]
  - WEIGHT INCREASED [None]
  - MUSCLE SPASMS [None]
